FAERS Safety Report 9649241 (Version 8)
Quarter: 2016Q2

REPORT INFORMATION
  Report Type: Spontaneous
  Country: US (occurrence: US)
  Receive Date: 20131028
  Receipt Date: 20160412
  Transmission Date: 20160815
  Serious: Yes (Hospitalization, Other)
  Sender: FDA-Public Use
  Company Number: US-GLAXOSMITHKLINE-A1044415A

PATIENT
  Sex: Female
  Weight: 72.7 kg

DRUGS (17)
  1. ADVAIR HFA [Suspect]
     Active Substance: FLUTICASONE PROPIONATE\SALMETEROL XINAFOATE
     Indication: ASTHMA
     Dosage: 1 PUFF(S), 1D
     Route: 055
  2. HUMALOG [Concomitant]
     Active Substance: INSULIN LISPRO
  3. TYLENOL [Concomitant]
     Active Substance: ACETAMINOPHEN
  4. LORAZEPAM. [Concomitant]
     Active Substance: LORAZEPAM
  5. DILTIAZEM HYDROCHLORIDE EXTENDED RELEASE [Concomitant]
     Active Substance: DILTIAZEM HYDROCHLORIDE
  6. CRESTOR [Concomitant]
     Active Substance: ROSUVASTATIN CALCIUM
  7. LANTUS [Concomitant]
     Active Substance: INSULIN GLARGINE
  8. FLEXERIL [Concomitant]
     Active Substance: CYCLOBENZAPRINE HYDROCHLORIDE
  9. POTASSIUM CL [Concomitant]
     Active Substance: POTASSIUM CHLORIDE
  10. IRBESARTAN. [Concomitant]
     Active Substance: IRBESARTAN
  11. ISOSORBIDE MONONITRATE. [Concomitant]
     Active Substance: ISOSORBIDE MONONITRATE
  12. VENTOLIN HFA [Suspect]
     Active Substance: ALBUTEROL SULFATE
     Indication: PRODUCT USED FOR UNKNOWN INDICATION
     Route: 065
  13. CORTISONE [Suspect]
     Active Substance: CORTISONE\HYDROCORTISONE
     Indication: PRODUCT USED FOR UNKNOWN INDICATION
  14. PREDNISONE. [Suspect]
     Active Substance: PREDNISONE
     Indication: PRODUCT USED FOR UNKNOWN INDICATION
     Dosage: TAPER
  15. ROBAXIN [Concomitant]
     Active Substance: METHOCARBAMOL
  16. TRAMADOL. [Concomitant]
     Active Substance: TRAMADOL
  17. FLUTICASONE [Concomitant]
     Active Substance: FLUTICASONE\FLUTICASONE PROPIONATE

REACTIONS (23)
  - Candida infection [Recovered/Resolved]
  - Dyspnoea [Recovered/Resolved]
  - Monarthritis [Unknown]
  - Drug ineffective [Unknown]
  - Atrial fibrillation [Unknown]
  - Inability to afford medication [Not Recovered/Not Resolved]
  - Adverse event [Unknown]
  - Asthenia [Unknown]
  - Heart rate irregular [Recovered/Resolved]
  - Emergency care [Unknown]
  - Intentional product use issue [Unknown]
  - Hospitalisation [Unknown]
  - Lung disorder [Recovered/Resolved]
  - Asthma [Unknown]
  - Nasal congestion [Not Recovered/Not Resolved]
  - Hypersensitivity [Recovered/Resolved]
  - Tachycardia [Recovered/Resolved]
  - Fatigue [Unknown]
  - Memory impairment [Unknown]
  - Bone disorder [Not Recovered/Not Resolved]
  - Arthropathy [Not Recovered/Not Resolved]
  - Drug administration error [Unknown]
  - Activities of daily living impaired [Unknown]

NARRATIVE: CASE EVENT DATE: 2013
